FAERS Safety Report 8763651 (Version 1)
Quarter: 2012Q4

REPORT INFORMATION
  Report Type: 
  Country: US (occurrence: US)
  Receive Date: 20120828
  Receipt Date: 20120828
  Transmission Date: 20130627
  Serious: Yes (Hospitalization)
  Sender: FDA-Public Use
  Company Number: US-VERTEX PHARMACEUTICAL INC.-2012-019868

PATIENT
  Age: 38 None
  Sex: Male
  Weight: 104.31 kg

DRUGS (3)
  1. INCIVEK [Suspect]
     Indication: HEPATITIS C
     Dosage: 750 mg, qd
     Route: 048
     Dates: start: 20120601
  2. RIBAVIRIN [Suspect]
     Indication: HEPATITIS C
     Dosage: 600 mg, bid
     Dates: start: 20120601
  3. PEGASYS [Suspect]
     Indication: HEPATITIS C
     Dosage: 180 ?g, UNK
     Route: 058
     Dates: start: 20120601

REACTIONS (6)
  - Chest pain [Recovered/Resolved]
  - Drug dose omission [Recovered/Resolved]
  - Pharyngeal oedema [Unknown]
  - Oropharyngeal pain [Unknown]
  - Pain [Unknown]
  - Rash [Not Recovered/Not Resolved]
